FAERS Safety Report 24662965 (Version 1)
Quarter: 2024Q4

REPORT INFORMATION
  Report Type: Spontaneous
  Country: US (occurrence: US)
  Receive Date: 20241126
  Receipt Date: 20241126
  Transmission Date: 20250114
  Serious: Yes (Other)
  Sender: Unknown Manufacturer
  Company Number: US-KOANAAP-SML-US-2024-01133

PATIENT
  Age: 48 Year
  Sex: Female

DRUGS (4)
  1. CAPECITABINE [Suspect]
     Active Substance: CAPECITABINE
     Indication: Hormone receptor positive HER2 negative breast cancer
  2. CAPECITABINE [Suspect]
     Active Substance: CAPECITABINE
  3. CAPECITABINE [Suspect]
     Active Substance: CAPECITABINE
  4. DOCETAXEL [Suspect]
     Active Substance: DOCETAXEL
     Indication: Hormone receptor positive HER2 negative breast cancer

REACTIONS (2)
  - Squamous cell carcinoma [Unknown]
  - Palmar-plantar erythrodysaesthesia syndrome [Recovered/Resolved]
